FAERS Safety Report 17549845 (Version 1)
Quarter: 2020Q1

REPORT INFORMATION
  Report Type: Spontaneous
  Country: PT (occurrence: PT)
  Receive Date: 20200317
  Receipt Date: 20200317
  Transmission Date: 20200409
  Serious: Yes (Other)
  Sender: FDA-Public Use
  Company Number: PT-TEVA-2020-PT-1201458

PATIENT
  Age: 69 Year
  Sex: Male

DRUGS (11)
  1. PANTOPRAZOLE [Concomitant]
     Active Substance: PANTOPRAZOLE
  2. ZYTIGA [Suspect]
     Active Substance: ABIRATERONE ACETATE
     Indication: PROSTATE CANCER
     Dosage: AT 10AM, 1000 MG
     Route: 048
     Dates: start: 20191223
  3. MEGESTROL GENERIS [Concomitant]
  4. TRAMADOL. [Concomitant]
     Active Substance: TRAMADOL
  5. SILODYX [Concomitant]
     Active Substance: SILODOSIN
  6. APIXABAN [Interacting]
     Active Substance: APIXABAN
     Route: 065
  7. CARVEDILOL. [Suspect]
     Active Substance: CARVEDILOL
     Route: 065
  8. ROSUVASTATIN. [Interacting]
     Active Substance: ROSUVASTATIN
     Route: 065
  9. ALPRAZOLAM. [Concomitant]
     Active Substance: ALPRAZOLAM
  10. HALOPERIDOL. [Interacting]
     Active Substance: HALOPERIDOL
     Route: 065
  11. ENALAPRIL + HIDROCLOROTIAZIDA [Interacting]
     Active Substance: ENALAPRIL MALEATE\HYDROCHLOROTHIAZIDE
     Route: 065

REACTIONS (5)
  - Decreased appetite [Unknown]
  - Fatigue [Unknown]
  - Hypertension [Unknown]
  - Dyspepsia [Unknown]
  - Drug interaction [Unknown]
